FAERS Safety Report 4723150-9 (Version None)
Quarter: 2005Q3

REPORT INFORMATION
  Report Type: 
  Country: None (occurrence: None)
  Receive Date: 20050719
  Receipt Date: 20040723
  Transmission Date: 20060218
  Serious: Yes (Other)
  Sender: FDA-Public Use
  Company Number: 2004225265US

PATIENT
  Age: 78 Year
  Sex: Female
  Weight: 88.4 kg

DRUGS (3)
  1. CELEBREX [Suspect]
     Indication: ARTHRITIS
     Dosage: 200 MG, QD, ORAL
     Route: 048
     Dates: start: 20040709, end: 20040719
  2. IMDUR [Suspect]
     Indication: HYPERTENSION
     Dosage: ORAL
     Route: 048
     Dates: start: 20010101
  3. TENORMIN [Concomitant]

REACTIONS (2)
  - CONTUSION [None]
  - PLATELET COUNT DECREASED [None]
